FAERS Safety Report 17881484 (Version 1)
Quarter: 2020Q2

REPORT INFORMATION
  Report Type: Spontaneous
  Country: US (occurrence: US)
  Receive Date: 20200610
  Receipt Date: 20200610
  Transmission Date: 20200714
  Serious: No
  Sender: FDA-Public Use
  Company Number: US-COLLEGIUM PHARMACEUTICAL, INC.-2020CGM00046

PATIENT
  Age: 54 Year
  Sex: Female
  Weight: 102.95 kg

DRUGS (4)
  1. GABAPENTIN. [Concomitant]
     Active Substance: GABAPENTIN
     Dosage: UNK, AS NEEDED
  2. XTAMPZA ER [Suspect]
     Active Substance: OXYCODONE
     Indication: PAIN
     Dosage: 9 MG, ONCE
     Route: 048
     Dates: start: 20200215, end: 20200215
  3. ONDANSETRON [Concomitant]
     Active Substance: ONDANSETRON
     Dosage: UNK, AS NEEDED
  4. ADDERALL XR [Concomitant]
     Active Substance: AMPHETAMINE ASPARTATE\AMPHETAMINE SULFATE\DEXTROAMPHETAMINE SACCHARATE\DEXTROAMPHETAMINE SULFATE

REACTIONS (1)
  - Drug ineffective [Recovered/Resolved]

NARRATIVE: CASE EVENT DATE: 20200215
